FAERS Safety Report 22088679 (Version 1)
Quarter: 2023Q1

REPORT INFORMATION
  Report Type: Spontaneous
  Country: US (occurrence: US)
  Receive Date: 20230313
  Receipt Date: 20230313
  Transmission Date: 20230417
  Serious: No
  Sender: FDA-Public Use
  Company Number: US-BRISTOL-MYERS SQUIBB COMPANY-2023-036327

PATIENT
  Age: 71 Year
  Sex: Female
  Weight: 88.45 kg

DRUGS (4)
  1. ELIQUIS [Suspect]
     Active Substance: APIXABAN
     Indication: Thrombosis prophylaxis
     Route: 048
     Dates: start: 202211
  2. ELIQUIS [Suspect]
     Active Substance: APIXABAN
     Route: 048
  3. SIMVASTATIN [Concomitant]
     Active Substance: SIMVASTATIN
     Indication: Product used for unknown indication
     Dosage: NIGHTLY (PRIOR TO ELIQUIS)
  4. LEVOTHYROXINE [Concomitant]
     Active Substance: LEVOTHYROXINE
     Indication: Product used for unknown indication
     Dosage: (PRIOR TO ELIQUIS)

REACTIONS (4)
  - Arthralgia [Not Recovered/Not Resolved]
  - Sinus disorder [Unknown]
  - Weight decreased [Unknown]
  - Off label use [Unknown]
